FAERS Safety Report 4321686-6 (Version None)
Quarter: 2004Q1

REPORT INFORMATION
  Report Type: 
  Country: None (occurrence: None)
  Receive Date: 20040322
  Receipt Date: 20030926
  Transmission Date: 20041129
  Serious: No
  Sender: FDA-Public Use
  Company Number: US-BRISTOL-MYERS SQUIBB COMPANY-12421186

PATIENT
  Age: 24 Year
  Sex: Female
  Weight: 59 kg

DRUGS (2)
  1. VAGISTAT-1 [Suspect]
     Indication: VAGINAL MYCOSIS
     Route: 067
     Dates: start: 20030925, end: 20030925
  2. ANTIBIOTIC [Concomitant]
     Dates: end: 20030912

REACTIONS (3)
  - ABDOMINAL PAIN [None]
  - DISCOMFORT [None]
  - VAGINAL HAEMORRHAGE [None]
